FAERS Safety Report 8446611-8 (Version None)
Quarter: 2012Q2

REPORT INFORMATION
  Report Type: 
  Country: None (occurrence: None)
  Receive Date: 20120619
  Receipt Date: 20120611
  Transmission Date: 20120825
  Serious: Yes (Other)
  Sender: FDA-Public Use
  Company Number: NL-AMGEN-NLDSP2012037310

PATIENT
  Age: 66 Year
  Sex: Male

DRUGS (3)
  1. ENBREL [Suspect]
     Indication: RHEUMATOID ARTHRITIS
     Dosage: 50 MG, WEEKLY
     Dates: start: 20111214
  2. METHOTREXATE [Suspect]
     Dosage: UNK
  3. PREDNISONE TAB [Concomitant]
     Dosage: UNK

REACTIONS (2)
  - CHEST PAIN [None]
  - PAIN IN JAW [None]
